FAERS Safety Report 8537853-1 (Version None)
Quarter: 2012Q3

REPORT INFORMATION
  Report Type: 
  Country: None (occurrence: None)
  Receive Date: 20120725
  Receipt Date: 20120724
  Transmission Date: 20120928
  Serious: Yes (Hospitalization)
  Sender: FDA-Public Use
  Company Number: US-TEVA-349919USA

PATIENT
  Age: 1 Year
  Sex: Male

DRUGS (5)
  1. DEXAMETHASONE [Suspect]
     Dates: start: 20110527
  2. LESTAURTINIB [Suspect]
     Indication: ACUTE LYMPHOCYTIC LEUKAEMIA
     Route: 042
     Dates: start: 20110527
  3. METHOTREXATE [Suspect]
     Dates: start: 20110527
  4. MERCAPTOPURINE [Suspect]
     Dates: start: 20110527
  5. VINCRISTINE [Suspect]
     Dates: start: 20110527

REACTIONS (2)
  - FEBRILE NEUTROPENIA [None]
  - ADENOVIRUS INFECTION [None]
